FAERS Safety Report 16901111 (Version 1)
Quarter: 2019Q4

REPORT INFORMATION
  Report Type: Spontaneous
  Country: GB (occurrence: GB)
  Receive Date: 20191009
  Receipt Date: 20191009
  Transmission Date: 20200122
  Serious: Yes (Other)
  Sender: FDA-Public Use
  Company Number: GB-MYLANLABS-2019M1094687

PATIENT
  Age: 54 Year
  Sex: Female

DRUGS (11)
  1. CYCLOPHOSPHAMIDE. [Concomitant]
     Active Substance: CYCLOPHOSPHAMIDE
     Indication: OCULAR PEMPHIGOID
     Dosage: 100 MG, UNK
     Route: 042
  2. COTRIMOXAZOLE [Concomitant]
     Active Substance: SULFAMETHOXAZOLE\TRIMETHOPRIM
     Indication: OCULAR PEMPHIGOID
     Dosage: UNK
     Route: 065
  3. MYCOPHENOLIC ACID. [Suspect]
     Active Substance: MYCOPHENOLIC ACID
     Indication: OCULAR PEMPHIGOID
     Dosage: 1.5 G, BID
     Route: 065
  4. MYCOPHENOLIC ACID. [Suspect]
     Active Substance: MYCOPHENOLIC ACID
     Dosage: 1 G, BID
     Route: 065
  5. PREDNISOLONE. [Suspect]
     Active Substance: PREDNISOLONE
     Dosage: UNK
     Route: 048
  6. PREDNISOLONE. [Suspect]
     Active Substance: PREDNISOLONE
     Dosage: 40 MILLIGRAM, QD (WHICH WAS TAPERED OVER FIVE-DAY INTERVALS)
     Route: 048
  7. TREHALOSE [Concomitant]
     Active Substance: TREHALOSE
     Indication: PRODUCT USED FOR UNKNOWN INDICATION
     Dosage: UNK UNK, QID
     Route: 065
  8. HYALURONIC ACID [Concomitant]
     Active Substance: HYALURONIC ACID
     Indication: PRODUCT USED FOR UNKNOWN INDICATION
     Dosage: UNK UNK, QID
     Route: 065
  9. PREDNISOLONE. [Suspect]
     Active Substance: PREDNISOLONE
     Indication: OCULAR PEMPHIGOID
     Dosage: 20 MG, QD
     Route: 048
  10. PREDNISOLONE. [Suspect]
     Active Substance: PREDNISOLONE
     Dosage: 10 MILLIGRAM, QD
     Route: 048
  11. DAPSONE. [Suspect]
     Active Substance: DAPSONE
     Indication: OCULAR PEMPHIGOID
     Dosage: 500 MG, BID
     Route: 048

REACTIONS (4)
  - Product use in unapproved indication [Unknown]
  - Ocular pemphigoid [Unknown]
  - Diabetes mellitus [Unknown]
  - Disease progression [Unknown]
